FAERS Safety Report 7483407-8 (Version None)
Quarter: 2011Q2

REPORT INFORMATION
  Report Type: 
  Country: None (occurrence: None)
  Receive Date: 20110509
  Receipt Date: 20110425
  Transmission Date: 20111010
  Serious: Yes (Death)
  Sender: FDA-Public Use
  Company Number: 2011P1006232

PATIENT
  Age: 46 Year
  Sex: Male

DRUGS (2)
  1. FENTANYL [Suspect]
     Dates: start: 20100209, end: 20100216
  2. UNSPECIFIED MEDICATIONS [Concomitant]

REACTIONS (3)
  - TOXICITY TO VARIOUS AGENTS [None]
  - SELF-MEDICATION [None]
  - ALCOHOL USE [None]
